FAERS Safety Report 5190899-6 (Version None)
Quarter: 2006Q4

REPORT INFORMATION
  Report Type: 
  Country: None (occurrence: None)
  Receive Date: 20061222
  Receipt Date: 20061027
  Transmission Date: 20070319
  Serious: Yes (Hospitalization)
  Sender: FDA-Public Use
  Company Number: US-ELI_LILLY_AND_COMPANY-US200610005505

PATIENT
  Age: 45 Year
  Sex: Female

DRUGS (6)
  1. ZYPREXA [Suspect]
     Indication: SCHIZOPHRENIA
     Dosage: 15 MG, UNK
     Route: 048
     Dates: start: 19970101
  2. ZYPREXA [Suspect]
     Dosage: 30 MG, EACH EVENING
     Route: 048
     Dates: start: 19970101
  3. SEROQUEL [Concomitant]
  4. CHLORPROMAZINE [Concomitant]
     Route: 048
  5. DOXEPIN HCL [Concomitant]
     Route: 048
  6. FUROSEMIDE [Concomitant]
     Route: 048

REACTIONS (34)
  - ACUTE PSYCHOSIS [None]
  - ASTHMA [None]
  - BARTHOLIN'S ABSCESS [None]
  - CARDIOVASCULAR DISORDER [None]
  - COMPUTERISED TOMOGRAM ABNORMAL [None]
  - CONDITION AGGRAVATED [None]
  - DIABETES MELLITUS [None]
  - DIABETES MELLITUS NON-INSULIN-DEPENDENT [None]
  - EXOSTOSIS [None]
  - FALL [None]
  - GOUT [None]
  - GRANULOCYTE COUNT INCREASED [None]
  - GRANULOCYTES ABNORMAL [None]
  - HYPERTENSION [None]
  - HYPOMAGNESAEMIA [None]
  - INCISION SITE HAEMORRHAGE [None]
  - LEUKOCYTOSIS [None]
  - LOCALISED INFECTION [None]
  - LYMPHOCYTE COUNT DECREASED [None]
  - MENTAL STATUS CHANGES [None]
  - NEPHRECTOMY [None]
  - NEUROPATHY [None]
  - OPHTHALMOLOGICAL EXAMINATION ABNORMAL [None]
  - PAIN IN EXTREMITY [None]
  - PLATELET COUNT INCREASED [None]
  - PNEUMONIA PNEUMOCOCCAL [None]
  - PRESCRIBED OVERDOSE [None]
  - PULMONARY EMBOLISM [None]
  - RENAL HYPERTROPHY [None]
  - TACHYCARDIA [None]
  - THERAPY NON-RESPONDER [None]
  - THROMBOCYTHAEMIA [None]
  - VAGINAL HAEMORRHAGE [None]
  - WHITE BLOOD CELL COUNT INCREASED [None]
